FAERS Safety Report 10256710 (Version 1)
Quarter: 2014Q2

REPORT INFORMATION
  Report Type: Report from Study
  Country: DE (occurrence: DE)
  Receive Date: 20140624
  Receipt Date: 20140624
  Transmission Date: 20141212
  Serious: Yes (Hospitalization)
  Sender: FDA-Public Use
  Company Number: DE-JNJFOC-20140104449

PATIENT
  Age: 66 Year
  Sex: Male
  Weight: 90 kg

DRUGS (6)
  1. XARELTO [Suspect]
     Indication: THROMBOSIS PROPHYLAXIS
     Route: 048
     Dates: start: 20130628, end: 20130805
  2. XARELTO [Suspect]
     Indication: DEEP VEIN THROMBOSIS
     Route: 048
     Dates: start: 20130628, end: 20130805
  3. DICLOFENAC SODIUM [Concomitant]
     Route: 065
     Dates: start: 201302, end: 201305
  4. METOPROLOL [Concomitant]
     Route: 065
     Dates: end: 201311
  5. CETIRIZIN [Concomitant]
     Route: 065
  6. LERCANIDIPINE [Concomitant]
     Route: 065
     Dates: start: 201311

REACTIONS (3)
  - Sciatica [Recovering/Resolving]
  - Skin disorder [Recovering/Resolving]
  - Oedema peripheral [Recovered/Resolved]
